FAERS Safety Report 4713835-2 (Version None)
Quarter: 2005Q3

REPORT INFORMATION
  Report Type: 
  Country: None (occurrence: None)
  Receive Date: 20050712
  Receipt Date: 20050624
  Transmission Date: 20060218
  Serious: Yes (Hospitalization, Other)
  Sender: FDA-Public Use
  Company Number: 2005071755

PATIENT
  Sex: Male
  Weight: 76.2043 kg

DRUGS (5)
  1. CELEBREX [Suspect]
     Indication: ARTHRITIS
     Dosage: 200 MG (200 MG, 1 IN 1 D), ORAL
     Route: 048
     Dates: start: 20020621
  2. BEXTRA [Suspect]
     Indication: ARTHRITIS
     Dosage: 20 MG (20 MG, 1 IN 1 D), ORAL
     Route: 048
     Dates: start: 20041026
  3. LIPITOR [Suspect]
     Indication: HYPERCHOLESTEROLAEMIA
     Dosage: ORAL
     Route: 048
     Dates: start: 20001006
  4. MAVIK [Concomitant]
  5. ASPIRIN [Concomitant]

REACTIONS (36)
  - AORTIC ANEURYSM [None]
  - ARTHROPATHY [None]
  - CAROTID ARTERY OCCLUSION [None]
  - CATARACT [None]
  - CHRONIC OBSTRUCTIVE PULMONARY DISEASE [None]
  - COLONIC POLYP [None]
  - DERMAL CYST [None]
  - DYSPHONIA [None]
  - ERECTILE DYSFUNCTION [None]
  - EXTRASYSTOLES [None]
  - HYPERSENSITIVITY [None]
  - HYPOGLYCAEMIA [None]
  - INSOMNIA [None]
  - JOINT DISLOCATION [None]
  - LARYNGEAL OEDEMA [None]
  - LUNG NEOPLASM [None]
  - MEAN CELL HAEMOGLOBIN INCREASED [None]
  - MEAN CELL VOLUME INCREASED [None]
  - MONOCYTE COUNT DECREASED [None]
  - MYOCARDIAL INFARCTION [None]
  - NEPHROLITHIASIS [None]
  - OEDEMA PERIPHERAL [None]
  - ONYCHOMYCOSIS [None]
  - PAIN IN EXTREMITY [None]
  - PLEURAL CALCIFICATION [None]
  - PULMONARY GRANULOMA [None]
  - QRS AXIS ABNORMAL [None]
  - RED BLOOD CELL COUNT DECREASED [None]
  - RETINAL ARTERY EMBOLISM [None]
  - RHINITIS ALLERGIC [None]
  - SELF-MEDICATION [None]
  - SINUS DISORDER [None]
  - SPINAL DISORDER [None]
  - SUPRAVENTRICULAR EXTRASYSTOLES [None]
  - TOOTH DISORDER [None]
  - UPPER RESPIRATORY TRACT INFECTION [None]
